FAERS Safety Report 24217893 (Version 1)
Quarter: 2024Q3

REPORT INFORMATION
  Report Type: Spontaneous
  Country: US (occurrence: None)
  Receive Date: 20240815
  Receipt Date: 20240815
  Transmission Date: 20241017
  Serious: Yes (Other)
  Sender: Public
  Company Number: None

PATIENT
  Age: 40 Year
  Sex: Male
  Weight: 58.5 kg

DRUGS (3)
  1. OCTAGAM IMMUNE GLOBULIN (HUMAN) [Suspect]
     Active Substance: HUMAN IMMUNOGLOBULIN G
     Indication: Neoplasm
     Dosage: OTHER FREQUENCY : ONCE DAILY, 5 DAYS;?
     Route: 042
     Dates: start: 20240807
  2. Diphenhydramine 50 MG by IV [Concomitant]
  3. Acetaminophen 325 MG by mouth [Concomitant]

REACTIONS (5)
  - Balance disorder [None]
  - Dizziness [None]
  - Headache [None]
  - Tremor [None]
  - Drug ineffective [None]

NARRATIVE: CASE EVENT DATE: 20240807
